FAERS Safety Report 6791173-4 (Version None)
Quarter: 2010Q2

REPORT INFORMATION
  Report Type: 
  Country: None (occurrence: None)
  Receive Date: 20100624
  Receipt Date: 20100614
  Transmission Date: 20101027
  Serious: Yes (Other)
  Sender: FDA-Public Use
  Company Number: JP-PFIZER INC-2009268076

PATIENT
  Age: 41 Year
  Sex: Male
  Weight: 72 kg

DRUGS (4)
  1. SUNITINIB MALATE [Suspect]
     Indication: METASTATIC RENAL CELL CARCINOMA
     Dosage: 50 MG, 1X/DAY
     Route: 048
     Dates: start: 20090312
  2. PASTARON [Concomitant]
     Dosage: UNK
     Route: 062
     Dates: start: 20090313
  3. ISODINE [Concomitant]
     Dosage: UNK
     Route: 048
     Dates: start: 20090330
  4. DEXAMETHASONE [Concomitant]
     Dosage: UNK
     Route: 062
     Dates: start: 20090330

REACTIONS (2)
  - THYROID DISORDER [None]
  - WHITE BLOOD CELL COUNT DECREASED [None]
